FAERS Safety Report 5792427-0 (Version None)
Quarter: 2008Q2

REPORT INFORMATION
  Report Type: 
  Country: None (occurrence: None)
  Receive Date: 20080625
  Receipt Date: 20080411
  Transmission Date: 20081010
  Serious: Yes (Hospitalization)
  Sender: FDA-Public Use
  Company Number: US-WYE-H03514508

PATIENT
  Age: 58 Year
  Sex: Female
  Weight: 101.6 kg

DRUGS (15)
  1. TORISEL [Suspect]
     Indication: RENAL CELL CARCINOMA
     Dosage: 20 MG 1X PER 1 WK, INTRAVENOUS
     Route: 042
     Dates: start: 20071113
  2. BENICAR [Concomitant]
  3. DARVOCET-N (DEXTROPROPOXYPHENE/PARACETAMOL) [Concomitant]
  4. FISH (FISH OIL) [Concomitant]
  5. HUMULIN R [Concomitant]
  6. LANTUS [Concomitant]
  7. LOMOTIL [Concomitant]
  8. METAMUCIL-2 [Concomitant]
  9. NEURONTIN [Concomitant]
  10. PRILOSEC [Concomitant]
  11. VYTORIN [Concomitant]
  12. ZETIA [Concomitant]
  13. MULTIVITAMINS, PLAIN (MULTIVITAMINS, PLAIN) [Concomitant]
  14. PERIACTIN [Concomitant]
  15. BENADRYL [Concomitant]

REACTIONS (9)
  - BLISTER [None]
  - BLOOD GLUCOSE INCREASED [None]
  - CELLULITIS [None]
  - FUNGAL INFECTION [None]
  - INSOMNIA [None]
  - NEUTROPENIA [None]
  - OEDEMA PERIPHERAL [None]
  - RASH ERYTHEMATOUS [None]
  - RASH PRURITIC [None]
